FAERS Safety Report 16274562 (Version 2)
Quarter: 2019Q2

REPORT INFORMATION
  Report Type: Report from Study
  Country: JP (occurrence: JP)
  Receive Date: 20190506
  Receipt Date: 20190606
  Transmission Date: 20190711
  Serious: Yes (Other)
  Sender: FDA-Public Use
  Company Number: JP-ROCHE-2309397

PATIENT

DRUGS (3)
  1. TIPIRACIL [Suspect]
     Active Substance: TIPIRACIL
     Indication: COLORECTAL CANCER METASTATIC
     Route: 065
  2. TRIFLURIDINE. [Suspect]
     Active Substance: TRIFLURIDINE
     Indication: COLORECTAL CANCER METASTATIC
     Route: 065
  3. BEVACIZUMAB. [Suspect]
     Active Substance: BEVACIZUMAB
     Indication: COLORECTAL CANCER METASTATIC
     Route: 065

REACTIONS (7)
  - Nausea [Unknown]
  - Neutropenia [Unknown]
  - Proteinuria [Unknown]
  - Anaemia [Unknown]
  - Leukopenia [Unknown]
  - Hyperbilirubinaemia [Unknown]
  - Hypertension [Unknown]
